FAERS Safety Report 6702806-2 (Version None)
Quarter: 2010Q2

REPORT INFORMATION
  Report Type: 
  Country: None (occurrence: None)
  Receive Date: 20100428
  Receipt Date: 20100416
  Transmission Date: 20101027
  Serious: Yes (Hospitalization, Other)
  Sender: FDA-Public Use
  Company Number: 2010S1000196-002

PATIENT
  Age: 65 Year
  Sex: Male

DRUGS (4)
  1. PITAVASTATIN CALCIUM [Suspect]
     Indication: HYPERLIPIDAEMIA
     Dosage: 1 MG, PO
     Route: 048
     Dates: start: 20090901, end: 20100216
  2. ALLOFURINOL [Concomitant]
  3. AMLODIPINE BESYLATE [Concomitant]
  4. FERROUS SODIUM CITRATE [Concomitant]

REACTIONS (3)
  - ALTERED STATE OF CONSCIOUSNESS [None]
  - RENAL IMPAIRMENT [None]
  - RHABDOMYOLYSIS [None]
